FAERS Safety Report 25122930 (Version 1)
Quarter: 2025Q1

REPORT INFORMATION
  Report Type: Spontaneous
  Country: US (occurrence: US)
  Receive Date: 20250326
  Receipt Date: 20250326
  Transmission Date: 20250409
  Serious: Yes (Death)
  Sender: MYLAN
  Company Number: US-MYLANLABS-2025M1025531

PATIENT
  Sex: Female

DRUGS (32)
  1. OXALIPLATIN [Suspect]
     Active Substance: OXALIPLATIN
     Indication: Pancreatic carcinoma metastatic
  2. OXALIPLATIN [Suspect]
     Active Substance: OXALIPLATIN
     Route: 065
  3. OXALIPLATIN [Suspect]
     Active Substance: OXALIPLATIN
     Route: 065
  4. OXALIPLATIN [Suspect]
     Active Substance: OXALIPLATIN
  5. GEMCITABINE [Suspect]
     Active Substance: GEMCITABINE
     Indication: Pancreatic carcinoma metastatic
  6. GEMCITABINE [Suspect]
     Active Substance: GEMCITABINE
     Route: 065
  7. GEMCITABINE [Suspect]
     Active Substance: GEMCITABINE
     Route: 065
  8. GEMCITABINE [Suspect]
     Active Substance: GEMCITABINE
  9. FLUOROURACIL [Suspect]
     Active Substance: FLUOROURACIL
     Indication: Pancreatic carcinoma metastatic
  10. FLUOROURACIL [Suspect]
     Active Substance: FLUOROURACIL
     Route: 065
  11. FLUOROURACIL [Suspect]
     Active Substance: FLUOROURACIL
     Route: 065
  12. FLUOROURACIL [Suspect]
     Active Substance: FLUOROURACIL
  13. IRINOTECAN [Suspect]
     Active Substance: IRINOTECAN
     Indication: Pancreatic carcinoma metastatic
  14. IRINOTECAN [Suspect]
     Active Substance: IRINOTECAN
     Route: 065
  15. IRINOTECAN [Suspect]
     Active Substance: IRINOTECAN
     Route: 065
  16. IRINOTECAN [Suspect]
     Active Substance: IRINOTECAN
  17. LORAZEPAM [Suspect]
     Active Substance: LORAZEPAM
     Indication: Premedication
  18. LORAZEPAM [Suspect]
     Active Substance: LORAZEPAM
     Indication: Dysarthria
  19. LORAZEPAM [Suspect]
     Active Substance: LORAZEPAM
     Route: 048
  20. LORAZEPAM [Suspect]
     Active Substance: LORAZEPAM
     Route: 048
  21. LORAZEPAM [Suspect]
     Active Substance: LORAZEPAM
  22. LORAZEPAM [Suspect]
     Active Substance: LORAZEPAM
  23. LORAZEPAM [Suspect]
     Active Substance: LORAZEPAM
     Route: 048
  24. LORAZEPAM [Suspect]
     Active Substance: LORAZEPAM
     Route: 048
  25. ATROPINE [Suspect]
     Active Substance: ATROPINE
     Indication: Premedication
  26. ATROPINE [Suspect]
     Active Substance: ATROPINE
     Route: 042
  27. ATROPINE [Suspect]
     Active Substance: ATROPINE
     Route: 042
  28. ATROPINE [Suspect]
     Active Substance: ATROPINE
  29. METHYLPREDNISOLONE [Concomitant]
     Active Substance: METHYLPREDNISOLONE
     Indication: Premedication
  30. METHYLPREDNISOLONE [Concomitant]
     Active Substance: METHYLPREDNISOLONE
     Indication: Dysarthria
     Route: 042
  31. METHYLPREDNISOLONE [Concomitant]
     Active Substance: METHYLPREDNISOLONE
     Route: 042
  32. METHYLPREDNISOLONE [Concomitant]
     Active Substance: METHYLPREDNISOLONE

REACTIONS (5)
  - Drug ineffective [Fatal]
  - Dysarthria [Recovered/Resolved with Sequelae]
  - Blepharospasm [Recovered/Resolved with Sequelae]
  - Hypoaesthesia [Recovered/Resolved with Sequelae]
  - Paraesthesia [Recovered/Resolved with Sequelae]
